FAERS Safety Report 8612489-2 (Version None)
Quarter: 2012Q3

REPORT INFORMATION
  Report Type: 
  Country: None (occurrence: None)
  Receive Date: 20120822
  Receipt Date: 20120816
  Transmission Date: 20120928
  Serious: Yes (Hospitalization, Other)
  Sender: FDA-Public Use
  Company Number: US-B.I. PHARMACEUTICALS,INC./RIDGEFIELD-2012-BP-19682BP

PATIENT
  Sex: Female

DRUGS (9)
  1. FLUTICASONE PROPIONATE/SALMETEROL [Concomitant]
     Indication: DYSPNOEA
     Route: 055
  2. KLONOPIN [Concomitant]
     Route: 048
  3. REGLAN [Concomitant]
     Indication: ABDOMINAL DISCOMFORT
     Route: 048
  4. HYDROCODONE [Concomitant]
     Indication: PAIN
     Route: 048
  5. NEURONTIN [Concomitant]
     Indication: LIMB CRUSHING INJURY
     Route: 048
  6. PROAIR HFA [Concomitant]
     Indication: DYSPNOEA
  7. SPIRIVA [Suspect]
     Indication: ASTHMA
     Dosage: 18 MCG
     Route: 055
     Dates: start: 20120501
  8. CELEBREX [Concomitant]
     Route: 048
  9. COLON HELP [Concomitant]
     Indication: BOWEL MOVEMENT IRREGULARITY

REACTIONS (4)
  - CERVICAL VERTEBRAL FRACTURE [None]
  - INCORRECT ROUTE OF DRUG ADMINISTRATION [None]
  - FALL [None]
  - NECK PAIN [None]
